FAERS Safety Report 21189306 (Version 1)
Quarter: 2022Q3

REPORT INFORMATION
  Report Type: Spontaneous
  Country: FR (occurrence: FR)
  Receive Date: 20220809
  Receipt Date: 20220809
  Transmission Date: 20221027
  Serious: Yes (Hospitalization)
  Sender: FDA-Public Use
  Company Number: None

PATIENT
  Age: 48 Year
  Sex: Female

DRUGS (8)
  1. PREDNISONE [Suspect]
     Active Substance: PREDNISONE
     Indication: Systemic lupus erythematosus
     Dosage: 15 MG PAR JOUR
     Route: 048
     Dates: start: 20211105, end: 20211107
  2. DEXAMETHASONE [Suspect]
     Active Substance: DEXAMETHASONE
     Indication: Systemic lupus erythematosus
     Dosage: 1 DOSAGE FORM
     Route: 048
     Dates: start: 20211105, end: 20211107
  3. METHOTREXATE [Suspect]
     Active Substance: METHOTREXATE
     Indication: Systemic lupus erythematosus
     Dosage: 15 MG SC 1 PAR SEMAINE
     Route: 048
     Dates: start: 20211105, end: 20211107
  4. PREDNISOLONE [Suspect]
     Active Substance: PREDNISOLONE
     Indication: Product used for unknown indication
     Dosage: 15 MG (15 MG PAR JOUR)
     Route: 048
     Dates: start: 20211105, end: 20211107
  5. CLOPIDOGREL [Suspect]
     Active Substance: CLOPIDOGREL BISULFATE
     Indication: Systemic lupus erythematosus
     Dosage: 1 DOSAGE FORM
     Route: 048
     Dates: start: 20211105, end: 20211107
  6. PLAQUENIL [Suspect]
     Active Substance: HYDROXYCHLOROQUINE SULFATE
     Indication: Systemic lupus erythematosus
     Dosage: 800 MG (200 MG X 2 MATIN ET SOIR)
     Route: 048
     Dates: start: 20211105, end: 20211107
  7. KARDEGIC [Suspect]
     Active Substance: ASPIRIN DL-LYSINE
     Indication: Systemic lupus erythematosus
     Dosage: 75 MG (75 MG LE MIDI)
     Route: 048
     Dates: start: 20211105, end: 20211107
  8. CHLOROQUINE [Suspect]
     Active Substance: CHLOROQUINE
     Indication: Systemic lupus erythematosus
     Dosage: 1 DOSAGE FORM
     Route: 048
     Dates: start: 20211105, end: 20211107

REACTIONS (1)
  - Rash maculo-papular [Recovered/Resolved]

NARRATIVE: CASE EVENT DATE: 20211106
